FAERS Safety Report 13747025 (Version 2)
Quarter: 2017Q3

REPORT INFORMATION
  Report Type: Spontaneous
  Country: US (occurrence: US)
  Receive Date: 20170712
  Receipt Date: 20170724
  Transmission Date: 20171127
  Serious: Yes (Hospitalization)
  Sender: FDA-Public Use
  Company Number: US-BAYER-2017-134351

PATIENT
  Age: 79 Year
  Sex: Female

DRUGS (1)
  1. GADAVIST [Suspect]
     Active Substance: GADOBUTROL
     Indication: NUCLEAR MAGNETIC RESONANCE IMAGING
     Dosage: 7.5 ML, ONCE
     Route: 042

REACTIONS (5)
  - Dyspnoea [Unknown]
  - Urticaria [Unknown]
  - Sneezing [Unknown]
  - Nausea [Unknown]
  - Eye swelling [None]

NARRATIVE: CASE EVENT DATE: 201707
